FAERS Safety Report 18621094 (Version 1)
Quarter: 2020Q4

REPORT INFORMATION
  Report Type: Report from Study
  Country: None (occurrence: DE)
  Receive Date: 20201216
  Receipt Date: 20201216
  Transmission Date: 20210114
  Serious: Yes (Hospitalization)
  Sender: FDA-Public Use
  Company Number: DE-ABBVIE-20K-062-3691804-00

PATIENT
  Age: 64 Year
  Sex: Female

DRUGS (1)
  1. HUMIRA [Suspect]
     Active Substance: ADALIMUMAB
     Indication: PSORIASIS
     Route: 058
     Dates: start: 20180620, end: 20181212

REACTIONS (15)
  - Mean cell haemoglobin concentration increased [Unknown]
  - Acute myocardial infarction [Unknown]
  - Renal artery stenosis [Unknown]
  - Bradycardia [Unknown]
  - Blood pressure systolic abnormal [Unknown]
  - Mean cell volume increased [Unknown]
  - Unevaluable event [Unknown]
  - Hyperaldosteronism [Unknown]
  - Blood bilirubin increased [Unknown]
  - Hypertension [Unknown]
  - Hypertensive crisis [Recovered/Resolved]
  - Alanine aminotransferase increased [Unknown]
  - Angina pectoris [Unknown]
  - Mitral valve incompetence [Unknown]
  - Disease risk factor [Unknown]

NARRATIVE: CASE EVENT DATE: 2019
